FAERS Safety Report 23971210 (Version 2)
Quarter: 2025Q3

REPORT INFORMATION
  Report Type: Spontaneous
  Country: EU (occurrence: EU)
  Receive Date: 20240613
  Receipt Date: 20250904
  Transmission Date: 20251020
  Serious: Yes (Death, Life-Threatening, Hospitalization, Other)
  Sender: ACCORD
  Company Number: EU-Accord-429162

PATIENT
  Age: 86 Year
  Sex: Male

DRUGS (1)
  1. METHOTREXATE [Suspect]
     Active Substance: METHOTREXATE
     Indication: Dermatitis atopic
     Route: 048

REACTIONS (9)
  - Acute kidney injury [Unknown]
  - Multiple organ dysfunction syndrome [Fatal]
  - Bone marrow failure [Unknown]
  - Inappropriate schedule of product administration [Fatal]
  - Off label use [Unknown]
  - Pancytopenia [Fatal]
  - Accidental overdose [Fatal]
  - Skin lesion [Unknown]
  - Condition aggravated [Unknown]
